FAERS Safety Report 5273120-X (Version None)
Quarter: 2007Q1

REPORT INFORMATION
  Report Type: 
  Country: None (occurrence: None)
  Receive Date: 20070322
  Receipt Date: 20070312
  Transmission Date: 20070707
  Serious: Yes (Other)
  Sender: FDA-Public Use
  Company Number: US-SANOFI-SYNTHELABO-A03200702062

PATIENT
  Sex: Male

DRUGS (11)
  1. PROTONIX [Concomitant]
     Dosage: UNK
     Route: 048
  2. NORVASC [Concomitant]
     Dosage: UNK
     Route: 048
  3. HYDROCHLOROTHIAZIDE [Concomitant]
     Dosage: UNK
     Route: 048
  4. COZAAR [Concomitant]
     Dosage: UNK
     Route: 048
  5. ATENOLOL [Concomitant]
     Dosage: UNK
     Route: 048
  6. EFFEXOR [Concomitant]
     Dosage: UNK
     Route: 048
  7. WELLBUTRIN [Concomitant]
     Dosage: UNK
     Route: 048
  8. AMBIEN [Suspect]
     Indication: INSOMNIA
     Route: 048
     Dates: start: 19970101
  9. AMBIEN [Suspect]
     Indication: RESTLESS LEGS SYNDROME
     Route: 048
     Dates: start: 19970101
  10. AMBIEN [Suspect]
     Dosage: 15 MG/DAY
     Route: 048
  11. AMBIEN [Suspect]
     Dosage: 15 MG/DAY
     Route: 048

REACTIONS (4)
  - AMNESIA [None]
  - EATING DISORDER [None]
  - SLEEP WALKING [None]
  - WEIGHT INCREASED [None]
